FAERS Safety Report 4637136-6 (Version None)
Quarter: 2005Q2

REPORT INFORMATION
  Report Type: 
  Country: None (occurrence: None)
  Receive Date: 20050325
  Receipt Date: 20041220
  Transmission Date: 20051028
  Serious: No
  Sender: FDA-Public Use
  Company Number: USA040875866

PATIENT
  Age: 67 Year
  Sex: Female
  Weight: 67 kg

DRUGS (6)
  1. FORTEO [Suspect]
     Indication: OSTEOPOROSIS
     Dosage: 20 UG/1 DAY
     Dates: start: 20040701
  2. PLAQUENIL [Concomitant]
  3. CELEBREX [Concomitant]
  4. RANITIDINE [Concomitant]
  5. KLONOPIN [Concomitant]
  6. CALCIUM GLUCONATE [Concomitant]

REACTIONS (4)
  - ANOREXIA [None]
  - ARTHRALGIA [None]
  - DECREASED APPETITE [None]
  - WEIGHT DECREASED [None]
